FAERS Safety Report 11897796 (Version 1)
Quarter: 2016Q1

REPORT INFORMATION
  Report Type: Spontaneous
  Country: US (occurrence: US)
  Receive Date: 20160108
  Receipt Date: 20160108
  Transmission Date: 20160526
  Serious: No
  Sender: FDA-Public Use
  Company Number: US-SUN PHARMACEUTICAL INDUSTRIES LTD-2015US-107848

PATIENT
  Sex: Male

DRUGS (1)
  1. HALOG [Suspect]
     Active Substance: HALCINONIDE
     Indication: PIGMENTATION DISORDER
     Dosage: UNK
     Route: 061
     Dates: start: 2015

REACTIONS (3)
  - Pruritus [Unknown]
  - Erythema [Unknown]
  - Hair injury [Unknown]

NARRATIVE: CASE EVENT DATE: 2015
